FAERS Safety Report 4733587-X (Version None)
Quarter: 2005Q3

REPORT INFORMATION
  Report Type: 
  Country: None (occurrence: None)
  Receive Date: 20050729
  Receipt Date: 20050719
  Transmission Date: 20060218
  Serious: Yes (Hospitalization)
  Sender: FDA-Public Use
  Company Number: 2005105509

PATIENT
  Sex: Female

DRUGS (2)
  1. OGEN [Suspect]
     Indication: ILL-DEFINED DISORDER
     Dates: end: 20050715
  2. PHENYTOIN [Concomitant]

REACTIONS (2)
  - CONVULSION [None]
  - TRANSIENT ISCHAEMIC ATTACK [None]
